FAERS Safety Report 5947516-4 (Version None)
Quarter: 2008Q4

REPORT INFORMATION
  Report Type: 
  Country: None (occurrence: None)
  Receive Date: 20081110
  Receipt Date: 20081031
  Transmission Date: 20090506
  Serious: Yes (Other)
  Sender: FDA-Public Use
  Company Number: PHHY2008MY26662

PATIENT
  Sex: Male

DRUGS (8)
  1. CLOZARIL [Suspect]
     Indication: SCHIZOPHRENIA
     Dosage: 12.5 MG, UNK
  2. CLOZARIL [Suspect]
     Dosage: 150 MG, UNK
  3. CLOZARIL [Suspect]
     Dosage: 75 MG DAILY
     Dates: start: 20081008
  4. CLOZARIL [Suspect]
     Dosage: 100 MG MANE AND 200 MG NOCTE
  5. HALOPERIDOL [Suspect]
     Dosage: UNK
  6. SULPIRIDE [Suspect]
     Dosage: UNK
  7. MODECATE [Suspect]
     Dosage: UNK
  8. CLOPIXOL ACUPHASE [Concomitant]
     Dosage: 100 MG ONE DOSE

REACTIONS (1)
  - TORTICOLLIS [None]
